FAERS Safety Report 13805253 (Version 1)
Quarter: 2017Q3

REPORT INFORMATION
  Report Type: Spontaneous
  Country: US (occurrence: US)
  Receive Date: 20170728
  Receipt Date: 20170728
  Transmission Date: 20171127
  Serious: Yes (Death)
  Sender: FDA-Public Use
  Company Number: None

PATIENT
  Age: 76 Year
  Sex: Female

DRUGS (25)
  1. SENSIPAR [Suspect]
     Active Substance: CINACALCET HYDROCHLORIDE
     Indication: CROHN^S DISEASE
     Route: 048
     Dates: start: 20150625, end: 201707
  2. ALBUTEROL. [Concomitant]
     Active Substance: ALBUTEROL
  3. LANTUS [Concomitant]
     Active Substance: INSULIN GLARGINE
  4. SENSIPAR [Concomitant]
     Active Substance: CINACALCET HYDROCHLORIDE
  5. TYLENOL [Concomitant]
     Active Substance: ACETAMINOPHEN
  6. VITAMIN B12 [Concomitant]
     Active Substance: CYANOCOBALAMIN
  7. ALLOPURINOL. [Concomitant]
     Active Substance: ALLOPURINOL
  8. MULTIVITAMIN [Concomitant]
     Active Substance: VITAMINS
  9. ASTEPRO [Concomitant]
     Active Substance: AZELASTINE HYDROCHLORIDE
  10. NOVOLOG [Concomitant]
     Active Substance: INSULIN ASPART
  11. NYSTOP [Concomitant]
     Active Substance: NYSTATIN
  12. CLONIDINE. [Concomitant]
     Active Substance: CLONIDINE
  13. PROTONIX [Concomitant]
     Active Substance: PANTOPRAZOLE SODIUM
  14. ZOCOR [Concomitant]
     Active Substance: SIMVASTATIN
  15. ARIPIPRAZOLE. [Concomitant]
     Active Substance: ARIPIPRAZOLE
  16. DHEA [Concomitant]
     Active Substance: PRASTERONE
  17. ASPIRIN. [Concomitant]
     Active Substance: ASPIRIN
  18. EFFEXOR [Concomitant]
     Active Substance: VENLAFAXINE HYDROCHLORIDE
  19. OXYCONDONE [Concomitant]
  20. SODIUM BICARB [Concomitant]
     Active Substance: SODIUM BICARBONATE
  21. ARANESP [Concomitant]
     Active Substance: DARBEPOETIN ALFA
  22. COREG [Concomitant]
     Active Substance: CARVEDILOL
  23. FISH OIL [Concomitant]
     Active Substance: FISH OIL
  24. NEURONTIN [Concomitant]
     Active Substance: GABAPENTIN
  25. FLUOCINONIDE. [Concomitant]
     Active Substance: FLUOCINONIDE

REACTIONS (2)
  - Disease complication [None]
  - Pulmonary oedema [None]

NARRATIVE: CASE EVENT DATE: 20170719
